FAERS Safety Report 10760171 (Version 1)
Quarter: 2015Q1

REPORT INFORMATION
  Report Type: Report from Study
  Country: US (occurrence: US)
  Receive Date: 20150204
  Receipt Date: 20150204
  Transmission Date: 20150721
  Serious: Yes (Hospitalization)
  Sender: FDA-Public Use
  Company Number: US-MERCK-1502USA000835

PATIENT
  Age: 32 Year
  Sex: Male

DRUGS (10)
  1. NYSTATIN. [Concomitant]
     Active Substance: NYSTATIN
     Dosage: 5 ML, 4 IN 1 DAY, TOPICALLY PRN
     Route: 061
  2. ONDANSETRON [Concomitant]
     Active Substance: ONDANSETRON
     Dosage: 8 MG, PRN
  3. DOCUSATE SODIUM. [Concomitant]
     Active Substance: DOCUSATE SODIUM
     Dosage: 100 MG, PRN
  4. LEVETIRACETAM. [Concomitant]
     Active Substance: LEVETIRACETAM
     Dosage: 1000 MG, 2 IN 1 DAY
  5. OMEPRAZOLE. [Concomitant]
     Active Substance: OMEPRAZOLE
     Dosage: 40 MG DAILY
  6. DEXAMETHASONE (+) TOBRAMYCIN [Concomitant]
     Active Substance: DEXAMETHASONE\TOBRAMYCIN
     Dosage: 0.3-0.14 (UNIT UNKNOWN), PRN
  7. BEVACIZUMAB [Suspect]
     Active Substance: BEVACIZUMAB
     Indication: GLIOBLASTOMA
     Dosage: FORMULATION: INFUSION, SOLUTION
     Route: 042
     Dates: start: 20140506
  8. VORINOSTAT [Suspect]
     Active Substance: VORINOSTAT
     Indication: GLIOBLASTOMA
     Dosage: TOTAL DAILY DOSE 400 MG
     Route: 048
     Dates: start: 20140506, end: 20140512
  9. ACETAMINOPHEN. [Concomitant]
     Active Substance: ACETAMINOPHEN
     Dosage: 1000 MG DAILY
  10. HEXADROL [Concomitant]
     Active Substance: DEXAMETHASONE
     Dosage: 4 MG DAILY

REACTIONS (2)
  - Pulmonary embolism [Unknown]
  - Memory impairment [Unknown]

NARRATIVE: CASE EVENT DATE: 20140509
